FAERS Safety Report 25039100 (Version 2)
Quarter: 2025Q3

REPORT INFORMATION
  Report Type: Spontaneous
  Country: US (occurrence: US)
  Receive Date: 20250305
  Receipt Date: 20250905
  Transmission Date: 20251021
  Serious: No
  Sender: BIOGEN
  Company Number: US-BIOGEN-2024BI01286124

PATIENT
  Sex: Female

DRUGS (17)
  1. VUMERITY [Suspect]
     Active Substance: DIROXIMEL FUMARATE
     Indication: Multiple sclerosis
     Dosage: TAKE 2 CAPSULES (462MG) BY MOUTH TWICE DAILY.
     Route: 050
     Dates: start: 20220720
  2. VUMERITY [Suspect]
     Active Substance: DIROXIMEL FUMARATE
     Dosage: STARTING DOSE
     Route: 050
     Dates: start: 20220713, end: 20220719
  3. MAGNESIUM [Concomitant]
     Active Substance: MAGNESIUM
     Route: 050
  4. PRIMIDONE [Concomitant]
     Active Substance: PRIMIDONE
     Route: 050
  5. ROSUVASTATIN [Concomitant]
     Active Substance: ROSUVASTATIN
     Route: 050
  6. CALCIUM [Concomitant]
     Active Substance: CALCIUM
     Route: 050
  7. LACOSAMIDE [Concomitant]
     Active Substance: LACOSAMIDE
     Route: 050
  8. CLOBAZAM [Concomitant]
     Active Substance: CLOBAZAM
     Route: 050
  9. HERBALS\TURMERIC [Concomitant]
     Active Substance: HERBALS\TURMERIC
     Route: 050
  10. IODINE [Concomitant]
     Active Substance: IODINE
     Route: 050
  11. VITAMIN D3 [Concomitant]
     Active Substance: CHOLECALCIFEROL
     Route: 050
  12. QUETIAPINE FUMARATE [Concomitant]
     Active Substance: QUETIAPINE FUMARATE
     Route: 050
  13. ALBUTEROL [Concomitant]
     Active Substance: ALBUTEROL
     Route: 050
  14. COENZYME Q10 [Concomitant]
     Active Substance: DIETARY SUPPLEMENT\UBIDECARENONE
     Route: 050
  15. PRIMIDONE [Concomitant]
     Active Substance: PRIMIDONE
     Route: 050
  16. MELATONIN [Concomitant]
     Active Substance: MELATONIN
     Route: 050
  17. FLAXSEED [Concomitant]
     Active Substance: FLAX SEED
     Route: 050

REACTIONS (6)
  - Fatigue [Unknown]
  - Muscle spasms [Unknown]
  - Blood iron increased [Unknown]
  - Laryngitis [Recovered/Resolved]
  - Flushing [Unknown]
  - Rash [Unknown]
